FAERS Safety Report 22522473 (Version 2)
Quarter: 2023Q4

REPORT INFORMATION
  Report Type: Report from Study
  Country: ZA (occurrence: ZA)
  Receive Date: 20230605
  Receipt Date: 20231215
  Transmission Date: 20240110
  Serious: Yes (Hospitalization)
  Sender: FDA-Public Use
  Company Number: ZA-002147023-NVSC2023ZA123672

PATIENT
  Age: 62 Year
  Sex: Female

DRUGS (2)
  1. SIPONIMOD [Suspect]
     Active Substance: SIPONIMOD
     Indication: Secondary progressive multiple sclerosis
     Dosage: 2 MG, QD
     Route: 048
     Dates: start: 20220914
  2. SIPONIMOD [Suspect]
     Active Substance: SIPONIMOD
     Dosage: UNK, QD
     Route: 048
     Dates: start: 20231207

REACTIONS (3)
  - Burning sensation [Unknown]
  - Product dose omission issue [Unknown]
  - Product availability issue [Unknown]
